FAERS Safety Report 9257104 (Version 1)
Quarter: 2013Q1

REPORT INFORMATION
  Report Type: Spontaneous
  Country: US (occurrence: None)
  Receive Date: 20121212
  Receipt Date: 20121212
  Transmission Date: 20140127
  Serious: Yes (Other)
  Sender: FDA-Public Use
  Company Number: 1208USA009226

PATIENT
  Age: 69 Year
  Sex: Female

DRUGS (3)
  1. PEGINTRON [Suspect]
     Indication: HEPATITIS C
     Dosage: REDIPEN, 80 MICROGRAMS/0.5CC, UNK
     Dates: start: 20120831
  2. RIBAVIRIN [Suspect]
     Indication: HEPATITIS C
     Dosage: UNK
     Dates: start: 20120831
  3. VICTRELIS [Suspect]
     Indication: HEPATITIS C
     Dosage: UNK
     Dates: start: 20120928

REACTIONS (11)
  - Blood count abnormal [None]
  - Appetite disorder [None]
  - White blood cell count decreased [None]
  - Nausea [None]
  - Fatigue [None]
  - Irritability [None]
  - Fatigue [None]
  - Dysgeusia [None]
  - Vomiting [None]
  - Flatulence [None]
  - Decreased appetite [None]
